FAERS Safety Report 7676688-9 (Version None)
Quarter: 2011Q3

REPORT INFORMATION
  Report Type: 
  Country: None (occurrence: None)
  Receive Date: 20110811
  Receipt Date: 20110808
  Transmission Date: 20111222
  Serious: Yes (Other)
  Sender: FDA-Public Use
  Company Number: JP-PFIZER INC-2011181744

PATIENT
  Age: 74 Year
  Sex: Female

DRUGS (6)
  1. LANSOPRAZOLE [Concomitant]
     Dosage: UNK
  2. MICARDIS [Concomitant]
     Dosage: UNK
  3. CONIEL [Concomitant]
     Dosage: UNK
  4. URSO 250 [Concomitant]
     Dosage: UNK
  5. LYRICA [Suspect]
     Indication: INTERCOSTAL NEURALGIA
     Dosage: UNK
     Route: 048
     Dates: start: 20110729, end: 20110802
  6. ETIZOLAM [Concomitant]
     Dosage: UNK

REACTIONS (3)
  - DIZZINESS [None]
  - MUSCULAR WEAKNESS [None]
  - LORDOSIS [None]
